FAERS Safety Report 5263985-X (Version None)
Quarter: 2007Q1

REPORT INFORMATION
  Report Type: 
  Country: None (occurrence: None)
  Receive Date: 20061213
  Receipt Date: 20051214
  Transmission Date: 20070707
  Serious: Yes (Other)
  Sender: FDA-Public Use
  Company Number: 2005UW18828

PATIENT
  Age: 83 Year
  Sex: Female
  Weight: 46.26 kg

DRUGS (2)
  1. IRESSA [Suspect]
     Indication: LUNG NEOPLASM MALIGNANT
  2. SLEEP AID [Concomitant]

REACTIONS (6)
  - BLISTER [None]
  - EYE IRRITATION [None]
  - MUSCLE SPASMS [None]
  - PARAESTHESIA [None]
  - RHINORRHOEA [None]
  - SKIN DISORDER [None]
